FAERS Safety Report 8826474 (Version 1)
Quarter: 2012Q4

REPORT INFORMATION
  Report Type: 
  Country: FR (occurrence: FR)
  Receive Date: 20121005
  Receipt Date: 20121005
  Transmission Date: 20130627
  Serious: Yes (Death)
  Sender: FDA-Public Use
  Company Number: FR-GENZYME-FABR-1002769

PATIENT

DRUGS (2)
  1. FABRAZYME [Suspect]
     Indication: FABRY^S DISEASE
     Dosage: 70 mg, q2w
     Route: 042
     Dates: start: 20120628, end: 20120810
  2. FABRAZYME [Suspect]
     Dosage: 70 mg, q2w
     Route: 042
     Dates: start: 20010216, end: 201009

REACTIONS (2)
  - Cardiac arrest [Fatal]
  - Bundle branch block right [Fatal]
